FAERS Safety Report 6859759-6 (Version None)
Quarter: 2010Q3

REPORT INFORMATION
  Report Type: 
  Country: None (occurrence: None)
  Receive Date: 20100720
  Receipt Date: 20100709
  Transmission Date: 20110219
  Serious: Yes (Other)
  Sender: FDA-Public Use
  Company Number: CA-CELGENEUS-028-21880-10070937

PATIENT
  Sex: Male
  Weight: 82.7 kg

DRUGS (4)
  1. REVLIMID [Suspect]
     Indication: MULTIPLE MYELOMA
     Route: 048
     Dates: start: 20100416, end: 20100507
  2. REVLIMID [Suspect]
     Route: 048
     Dates: start: 20100514
  3. DEXAMETHASONE [Suspect]
     Indication: MULTIPLE MYELOMA
     Route: 048
     Dates: start: 20100416
  4. DEXAMETHASONE [Suspect]
     Route: 048

REACTIONS (3)
  - ASTHENIA [None]
  - DIPLOPIA [None]
  - DIZZINESS [None]
